FAERS Safety Report 7385234-9 (Version None)
Quarter: 2011Q1

REPORT INFORMATION
  Report Type: 
  Country: None (occurrence: None)
  Receive Date: 20110330
  Receipt Date: 20110322
  Transmission Date: 20110831
  Serious: Yes (Other)
  Sender: FDA-Public Use
  Company Number: FR-MERCK-1103FRA00010

PATIENT
  Age: 50 Year
  Sex: Male

DRUGS (2)
  1. BUDESONIDE AND FORMOTEROL FUMARATE [Concomitant]
     Route: 055
  2. SINGULAIR [Suspect]
     Indication: ASTHMA
     Route: 048
     Dates: start: 20090316, end: 20090322

REACTIONS (1)
  - SUICIDAL IDEATION [None]
